FAERS Safety Report 6762904-4 (Version None)
Quarter: 2010Q2

REPORT INFORMATION
  Report Type: 
  Country: None (occurrence: None)
  Receive Date: 20100608
  Receipt Date: 20100608
  Transmission Date: 20101027
  Serious: Yes (Death, Hospitalization)
  Sender: FDA-Public Use
  Company Number: None

PATIENT
  Sex: Male
  Weight: 161.3 kg

DRUGS (1)
  1. COENZYME Q10 [Suspect]
     Indication: NEOPLASM MALIGNANT
     Dosage: PEA SIZED AMOUNT TO FOUR AREAS THREE TIMES/DAY TOP
     Route: 061
     Dates: start: 20100430, end: 20100528

REACTIONS (8)
  - BODY TEMPERATURE INCREASED [None]
  - CONFUSIONAL STATE [None]
  - COUGH [None]
  - DYSPNOEA [None]
  - GENERAL PHYSICAL HEALTH DETERIORATION [None]
  - LETHARGY [None]
  - NAUSEA [None]
  - VOMITING [None]
